FAERS Safety Report 17011389 (Version 1)
Quarter: 2019Q4

REPORT INFORMATION
  Report Type: Spontaneous
  Country: US (occurrence: US)
  Receive Date: 20191108
  Receipt Date: 20191108
  Transmission Date: 20200122
  Serious: No
  Sender: FDA-Public Use
  Company Number: US-NOVOPROD-672415

PATIENT
  Age: 67 Year
  Sex: Male

DRUGS (2)
  1. HUMALOG [Concomitant]
     Active Substance: INSULIN LISPRO
     Indication: TYPE 2 DIABETES MELLITUS
     Dosage: UNK
     Route: 065
  2. TRESIBA [Suspect]
     Active Substance: INSULIN DEGLUDEC
     Indication: TYPE 2 DIABETES MELLITUS
     Dosage: 45 IU, QD (9:30-10:30 PM)
     Route: 058
     Dates: start: 201901

REACTIONS (5)
  - Glycosylated haemoglobin increased [Not Recovered/Not Resolved]
  - Drug interaction [Not Recovered/Not Resolved]
  - Hypersensitivity [Unknown]
  - Blood glucose increased [Not Recovered/Not Resolved]
  - Aphonia [Unknown]

NARRATIVE: CASE EVENT DATE: 201901
